FAERS Safety Report 14896979 (Version 1)
Quarter: 2018Q2

REPORT INFORMATION
  Report Type: Spontaneous
  Country: US (occurrence: US)
  Receive Date: 20180427
  Receipt Date: 20180427
  Transmission Date: 20180711
  Serious: Yes (Hospitalization)
  Sender: FDA-Public Use
  Company Number: None

PATIENT
  Age: 62 Year
  Sex: Male
  Weight: 93.44 kg

DRUGS (16)
  1. ASPIRIN. [Concomitant]
     Active Substance: ASPIRIN
  2. METOPROLOL. [Concomitant]
     Active Substance: METOPROLOL
  3. SPRINOLACTONE [Concomitant]
  4. OPSUMIT [Concomitant]
     Active Substance: MACITENTAN
  5. KEFLEX [Concomitant]
     Active Substance: CEPHALEXIN
  6. LEVOTHYTRXOINE [Concomitant]
  7. FUROSEMIDE. [Concomitant]
     Active Substance: FUROSEMIDE
  8. AZELASTINE. [Concomitant]
     Active Substance: AZELASTINE HYDROCHLORIDE
  9. CILOSTAZOL. [Concomitant]
     Active Substance: CILOSTAZOL
  10. PRAVCHOL [Concomitant]
  11. ALLOPURINOL. [Concomitant]
     Active Substance: ALLOPURINOL
  12. JAKAFI [Concomitant]
     Active Substance: RUXOLITINIB
  13. PRILOSEC [Concomitant]
     Active Substance: OMEPRAZOLE MAGNESIUM
  14. K-TAB [Concomitant]
     Active Substance: POTASSIUM CHLORIDE
  15. ADCIRCA [Suspect]
     Active Substance: TADALAFIL
     Indication: PULMONARY ARTERIAL HYPERTENSION
     Route: 048
     Dates: start: 20170615
  16. DIOVAN [Concomitant]
     Active Substance: VALSARTAN

REACTIONS (1)
  - Surgery [None]

NARRATIVE: CASE EVENT DATE: 20180328
